FAERS Safety Report 5153655-0 (Version None)
Quarter: 2006Q4

REPORT INFORMATION
  Report Type: 
  Country: None (occurrence: None)
  Receive Date: 20061114
  Receipt Date: 20061102
  Transmission Date: 20070319
  Serious: Yes (Hospitalization)
  Sender: FDA-Public Use
  Company Number: GXKR2006CH07043

PATIENT
  Age: 70 Year
  Sex: Female

DRUGS (6)
  1. METFIN (NGX)  (METFORMIN ) FILM-COATED TABLET, 850MG [Suspect]
     Dosage: 1 DF, BID,  ORAL
     Route: 048
     Dates: end: 20060801
  2. TORASEMIDE (NGX) (METFORMIN) FILM-COATED TABLET, 850MG [Suspect]
     Dosage: 5 MG, QD, ORAL
     Route: 048
  3. ATENIL (ATENOLOL) TABLET [Concomitant]
  4. PANTOZOL (PANTOPRAZOLE SODIUM) TABLET [Concomitant]
  5. PLAVIX [Concomitant]
  6. PRAVASTATIN SODIUM (PRAVASTATIN SODIUM) TABLET [Concomitant]

REACTIONS (7)
  - CHEST PAIN [None]
  - CONTINUOUS HAEMODIAFILTRATION [None]
  - DIARRHOEA [None]
  - LACTIC ACIDOSIS [None]
  - RENAL FAILURE [None]
  - SOMNOLENCE [None]
  - TACHYPNOEA [None]
